FAERS Safety Report 9057780 (Version 1)
Quarter: 2013Q2

REPORT INFORMATION
  Report Type: Spontaneous
  Country: US (occurrence: None)
  Receive Date: 20130204
  Receipt Date: 20130204
  Transmission Date: 20140414
  Serious: Yes (Hospitalization)
  Sender: FDA-Public Use
  Company Number: None

PATIENT
  Age: 66 Year
  Sex: Male
  Weight: 60.96 kg

DRUGS (11)
  1. STA 9090 [Suspect]
     Indication: ADENOCARCINOMA PANCREAS
     Dates: start: 20121130, end: 20121214
  2. PROVENTIL [Concomitant]
  3. ASMANEX [Concomitant]
  4. GUIFENESIN [Concomitant]
  5. RANITIDINE [Concomitant]
  6. SPIRIVS [Concomitant]
  7. LOPERAMIDE [Concomitant]
  8. PROCHLORPERAZINE MELEATE [Concomitant]
  9. POLYETHYLENE GLYCOL [Concomitant]
  10. OXYCODON [Concomitant]
  11. AUGMENTIN [Concomitant]

REACTIONS (8)
  - Pyrexia [None]
  - Malaise [None]
  - Hypophagia [None]
  - Chills [None]
  - Abdominal pain [None]
  - Erythema [None]
  - Pain [None]
  - Deep vein thrombosis [None]
